FAERS Safety Report 19985381 (Version 1)
Quarter: 2021Q4

REPORT INFORMATION
  Report Type: Spontaneous
  Country: US (occurrence: US)
  Receive Date: 20211022
  Receipt Date: 20211022
  Transmission Date: 20220303
  Serious: Yes (Hospitalization)
  Sender: FDA-Public Use
  Company Number: None

PATIENT
  Sex: Female
  Weight: 70.5 kg

DRUGS (10)
  1. HYCAMTIN [Suspect]
     Active Substance: TOPOTECAN HYDROCHLORIDE
     Indication: Lung neoplasm malignant
     Dosage: ?          OTHER FREQUENCY:QD 5 OF 21 DAYS;
     Route: 048
  2. MECLIZINE [Concomitant]
     Active Substance: MECLIZINE HYDROCHLORIDE
  3. IBUPROFEN [Concomitant]
     Active Substance: IBUPROFEN
  4. MEMANTINE [Concomitant]
     Active Substance: MEMANTINE
  5. FAMOTIDINE [Concomitant]
     Active Substance: FAMOTIDINE
  6. ALLERY SEVERE SINUS [Concomitant]
  7. ACETAMINOPHEN [Concomitant]
     Active Substance: ACETAMINOPHEN
  8. ATORVASTATIN [Concomitant]
     Active Substance: ATORVASTATIN
  9. OXYCODONE [Concomitant]
     Active Substance: OXYCODONE
  10. COLACE [Concomitant]
     Active Substance: DOCUSATE SODIUM

REACTIONS (2)
  - Hospitalisation [None]
  - Near death experience [None]
